FAERS Safety Report 23818968 (Version 4)
Quarter: 2025Q4

REPORT INFORMATION
  Report Type: Spontaneous
  Country: US (occurrence: US)
  Receive Date: 20240506
  Receipt Date: 20251006
  Transmission Date: 20260117
  Serious: No
  Sender: BRISTOL-MYERS SQUIBB COMPANY
  Company Number: US-BRISTOL-MYERS SQUIBB COMPANY-2024-069154

PATIENT
  Age: 76 Year
  Sex: Female

DRUGS (6)
  1. POMALYST [Suspect]
     Active Substance: POMALIDOMIDE
     Indication: Plasma cell myeloma
  2. POMALYST [Suspect]
     Active Substance: POMALIDOMIDE
  3. POMALYST [Suspect]
     Active Substance: POMALIDOMIDE
     Dosage: FREQUENCY: TAKE 1 CAPSULE BY MOUTH WHOLE W/ WATER, W/ OR W/O FOOD AT THE SAME TIME DAILY ON DAYS 1- 21 OF EACH 28-DAY
  4. POMALYST [Suspect]
     Active Substance: POMALIDOMIDE
  5. POMALYST [Suspect]
     Active Substance: POMALIDOMIDE
  6. POMALYST [Suspect]
     Active Substance: POMALIDOMIDE

REACTIONS (4)
  - Product distribution issue [Unknown]
  - Therapy interrupted [Unknown]
  - White blood cell count decreased [Recovered/Resolved]
  - Dysphonia [Not Recovered/Not Resolved]
